FAERS Safety Report 13174857 (Version 1)
Quarter: 2017Q1

REPORT INFORMATION
  Report Type: Spontaneous
  Country: US (occurrence: CH)
  Receive Date: 20170201
  Receipt Date: 20170201
  Transmission Date: 20170428
  Serious: Yes (Other)
  Sender: FDA-Public Use
  Company Number: US-ABBVIE-16P-163-1743149-00

PATIENT
  Sex: Male

DRUGS (2)
  1. HUMIRA [Suspect]
     Active Substance: ADALIMUMAB
     Indication: OFF LABEL USE
  2. HUMIRA [Suspect]
     Active Substance: ADALIMUMAB
     Indication: HIDRADENITIS
     Route: 058

REACTIONS (12)
  - Off label use [Unknown]
  - Pain [Unknown]
  - Pruritus [Unknown]
  - Scab [Unknown]
  - Hidradenitis [Unknown]
  - Rheumatoid factor increased [Unknown]
  - Rheumatoid arthritis [Unknown]
  - Lupus-like syndrome [Unknown]
  - Malaise [Unknown]
  - Skin haemorrhage [Unknown]
  - Onychoclasis [Unknown]
  - Influenza like illness [Unknown]
